FAERS Safety Report 13049387 (Version 1)
Quarter: 2016Q4

REPORT INFORMATION
  Report Type: Report from Study
  Country: CA (occurrence: CA)
  Receive Date: 20161221
  Receipt Date: 20161221
  Transmission Date: 20170207
  Serious: Yes (Other)
  Sender: FDA-Public Use
  Company Number: CA-TAKEDA-2016TUS007594

PATIENT
  Age: 29 Year
  Sex: Female
  Weight: 52.2 kg

DRUGS (2)
  1. VEDOLIZUMAB [Suspect]
     Active Substance: VEDOLIZUMAB
     Indication: COLITIS ULCERATIVE
     Dosage: 300 MG, UNK
     Route: 042
     Dates: start: 20160318
  2. PREDNISONE. [Concomitant]
     Active Substance: PREDNISONE
     Dosage: 35 MG, UNK

REACTIONS (3)
  - Abortion spontaneous [Unknown]
  - Weight increased [Unknown]
  - Exposure during pregnancy [Unknown]

NARRATIVE: CASE EVENT DATE: 2016
